FAERS Safety Report 6174332-3 (Version None)
Quarter: 2009Q2

REPORT INFORMATION
  Report Type: 
  Country: None (occurrence: None)
  Receive Date: 20090430
  Receipt Date: 20080516
  Transmission Date: 20091009
  Serious: No
  Sender: FDA-Public Use
  Company Number: US-ASTRAZENECA-2008UW10170

PATIENT
  Age: 50 Year
  Sex: Female

DRUGS (1)
  1. NEXIUM [Suspect]
     Indication: DUODENOGASTRIC REFLUX
     Route: 048
     Dates: start: 20060101

REACTIONS (2)
  - ABDOMINAL PAIN UPPER [None]
  - ILL-DEFINED DISORDER [None]
